APPROVED DRUG PRODUCT: PIOGLITAZONE HYDROCHLORIDE AND GLIMEPIRIDE
Active Ingredient: GLIMEPIRIDE; PIOGLITAZONE HYDROCHLORIDE
Strength: 4MG;30MG
Dosage Form/Route: TABLET;ORAL
Application: A201049 | Product #002 | TE Code: AB
Applicant: CHARTWELL RX SCIENCES LLC
Approved: Jan 4, 2013 | RLD: No | RS: No | Type: RX